FAERS Safety Report 13955389 (Version 1)
Quarter: 2017Q3

REPORT INFORMATION
  Report Type: Spontaneous
  Country: US (occurrence: US)
  Receive Date: 20170911
  Receipt Date: 20170911
  Transmission Date: 20171128
  Serious: Yes (Other)
  Sender: FDA-Public Use
  Company Number: US-APOTEX-2017AP018161

PATIENT
  Age: 22 Year
  Sex: Male

DRUGS (1)
  1. TRAZODONE HYDROCHLORIDE. [Suspect]
     Active Substance: TRAZODONE HYDROCHLORIDE
     Indication: INSOMNIA
     Dosage: 100 MG, UNK
     Route: 048

REACTIONS (3)
  - Atrial fibrillation [Recovered/Resolved]
  - Orthostatic hypotension [Recovered/Resolved]
  - Electrocardiogram ST segment depression [Recovered/Resolved]
